FAERS Safety Report 13736921 (Version 1)
Quarter: 2017Q3

REPORT INFORMATION
  Report Type: Spontaneous
  Country: US (occurrence: US)
  Receive Date: 20170710
  Receipt Date: 20170710
  Transmission Date: 20171127
  Serious: No
  Sender: FDA-Public Use
  Company Number: US-ASTRAZENECA-2017SE68211

PATIENT
  Age: 25774 Day
  Sex: Male
  Weight: 88.5 kg

DRUGS (8)
  1. METFORMIN [Concomitant]
     Active Substance: METFORMIN HYDROCHLORIDE
     Indication: TYPE 2 DIABETES MELLITUS
     Dosage: 1000 MG, TAKES METFORMIN SINCE 14-15 YEARS AGO ONCE IN THE MORNING AND ONCE AT NIGHT
     Route: 048
  2. OMEGA 3 [Concomitant]
     Active Substance: OMEGA-3 FATTY ACIDS
     Indication: BLOOD TRIGLYCERIDES
     Dosage: SINCE 7 MONTHS AGO TAKES 2 CAPSULES 2 TIMES A DAY..
     Route: 048
  3. LOW DOSE ASPIRIN [Concomitant]
     Active Substance: ASPIRIN
     Indication: MYOCARDIAL INFARCTION
     Route: 048
  4. BYDUREON [Suspect]
     Active Substance: EXENATIDE
     Indication: TYPE 2 DIABETES MELLITUS
     Route: 058
     Dates: start: 20170503
  5. LOW DOSE ASPIRIN [Concomitant]
     Active Substance: ASPIRIN
     Indication: CEREBROVASCULAR ACCIDENT
     Route: 048
  6. BYDUREON [Suspect]
     Active Substance: EXENATIDE
     Indication: GLYCOSYLATED HAEMOGLOBIN INCREASED
     Route: 058
     Dates: start: 20170503
  7. GLIPIZIDE. [Concomitant]
     Active Substance: GLIPIZIDE
     Indication: TYPE 2 DIABETES MELLITUS
     Route: 048
  8. VALSARTAN. [Concomitant]
     Active Substance: VALSARTAN
     Indication: HYPERTENSION
     Route: 048

REACTIONS (9)
  - Product quality issue [Unknown]
  - Decreased appetite [Unknown]
  - Wrong technique in product usage process [Unknown]
  - Injection site nodule [Not Recovered/Not Resolved]
  - Underdose [Unknown]
  - Nausea [Unknown]
  - Incorrect disposal of product [Unknown]
  - Weight decreased [Not Recovered/Not Resolved]
  - Injection site pruritus [Recovered/Resolved]

NARRATIVE: CASE EVENT DATE: 20170503
